FAERS Safety Report 5165792-5 (Version None)
Quarter: 2006Q4

REPORT INFORMATION
  Report Type: 
  Country: None (occurrence: None)
  Receive Date: 20061128
  Receipt Date: 20061114
  Transmission Date: 20070319
  Serious: Yes (Hospitalization)
  Sender: FDA-Public Use
  Company Number: 232671

PATIENT
  Age: 38 Year
  Sex: Female
  Weight: 47 kg

DRUGS (4)
  1. MABTHERA(RITUXIMAB) CONC FOR SOLUTION FOR INFUSION [Suspect]
     Indication: NON-HODGKIN'S LYMPHOMA
     Dosage: 19 MG/ML, INTRAVENOUS
     Route: 042
     Dates: start: 20060101, end: 20060401
  2. VINCRISTINE [Concomitant]
  3. CYCLPHOSPHAMIDE (CYCLPHOSPHAMIDE) [Concomitant]
  4. DOXORUBICIN HCL [Concomitant]

REACTIONS (2)
  - LINEAR IGA DISEASE [None]
  - MUCOSAL ULCERATION [None]
